FAERS Safety Report 8603690-2 (Version None)
Quarter: 2012Q3

REPORT INFORMATION
  Report Type: 
  Country: None (occurrence: None)
  Receive Date: 20120817
  Receipt Date: 20120815
  Transmission Date: 20120928
  Serious: Yes (Death, Hospitalization)
  Sender: FDA-Public Use
  Company Number: FI-ROCHE-1099564

PATIENT
  Sex: Female

DRUGS (12)
  1. MEDROL [Concomitant]
     Route: 048
  2. PRIMASPAN [Concomitant]
     Route: 048
  3. RAMIPRIL [Concomitant]
     Route: 048
  4. LEVEMIR [Concomitant]
     Route: 058
  5. MABTHERA [Suspect]
     Indication: RHEUMATOID ARTHRITIS
     Route: 042
     Dates: start: 20120529, end: 20120613
  6. SOMAC (FINLAND) [Concomitant]
     Route: 048
  7. FUROSEMIDE [Concomitant]
     Route: 048
  8. MABTHERA [Suspect]
     Dosage: SECOND INFUSION
     Route: 042
     Dates: start: 20120613
  9. FELODIPINE [Concomitant]
     Route: 048
  10. MONTELUKAST [Concomitant]
     Route: 048
  11. FORMOTEROL FUMARATE [Concomitant]
     Route: 055
  12. NITROSID [Concomitant]
     Route: 048

REACTIONS (3)
  - RHEUMATOID ARTHRITIS [None]
  - DIARRHOEA HAEMORRHAGIC [None]
  - PULMONARY EMBOLISM [None]
